FAERS Safety Report 7737617-2 (Version None)
Quarter: 2011Q3

REPORT INFORMATION
  Report Type: 
  Country: None (occurrence: None)
  Receive Date: 20110908
  Receipt Date: 20110902
  Transmission Date: 20111222
  Serious: Yes (Death)
  Sender: FDA-Public Use
  Company Number: US-ELI_LILLY_AND_COMPANY-US201109000866

PATIENT
  Sex: Female

DRUGS (1)
  1. HUMATROPE [Suspect]

REACTIONS (1)
  - DEATH [None]
